FAERS Safety Report 13958050 (Version 1)
Quarter: 2017Q3

REPORT INFORMATION
  Report Type: Spontaneous
  Country: FR (occurrence: FR)
  Receive Date: 20170912
  Receipt Date: 20170912
  Transmission Date: 20171128
  Serious: Yes (Hospitalization)
  Sender: FDA-Public Use
  Company Number: PHHY2017FR130823

PATIENT
  Sex: Male

DRUGS (2)
  1. IBUPROFEN SANDOZ [Suspect]
     Active Substance: IBUPROFEN
     Indication: EAR INFECTION
     Dosage: 6 DF, UNK
     Route: 048
  2. IBUPROFEN SANDOZ [Suspect]
     Active Substance: IBUPROFEN
     Indication: PAIN

REACTIONS (1)
  - Intentional overdose [Unknown]

NARRATIVE: CASE EVENT DATE: 20170901
